FAERS Safety Report 13165080 (Version 1)
Quarter: 2017Q1

REPORT INFORMATION
  Report Type: Spontaneous
  Country: US (occurrence: US)
  Receive Date: 20170130
  Receipt Date: 20170130
  Transmission Date: 20170428
  Serious: Yes (Hospitalization, Other)
  Sender: FDA-Public Use
  Company Number: US-STI PHARMA LLC-1062534

PATIENT
  Age: 86 Year
  Sex: Male

DRUGS (1)
  1. ETHAMBUTOL HYDROCHLORIDE. [Suspect]
     Active Substance: ETHAMBUTOL HYDROCHLORIDE
     Route: 048
     Dates: start: 20090715

REACTIONS (8)
  - Myocardial infarction [Unknown]
  - Systemic inflammatory response syndrome [Unknown]
  - Staphylococcal infection [Unknown]
  - Hypotension [Unknown]
  - Tuberculosis [Unknown]
  - Pneumonia aspiration [Unknown]
  - Sepsis [Unknown]
  - Myocardial necrosis [Unknown]

NARRATIVE: CASE EVENT DATE: 20090715
